FAERS Safety Report 4677728-1 (Version None)
Quarter: 2005Q2

REPORT INFORMATION
  Report Type: 
  Country: None (occurrence: None)
  Receive Date: 20050526
  Receipt Date: 20050526
  Transmission Date: 20051028
  Serious: Yes (Hospitalization, Other)
  Sender: FDA-Public Use
  Company Number: None

PATIENT
  Age: 37 Year
  Sex: Male
  Weight: 70.3075 kg

DRUGS (7)
  1. CORICIDIN D SRT [Suspect]
     Indication: NASOPHARYNGITIS
     Dosage: PRN ORAL DAILY
     Route: 048
     Dates: start: 19950108, end: 19950204
  2. CORICIDIN D SRT [Suspect]
     Indication: NASOPHARYNGITIS
     Dosage: PRN ORAL DAILY
     Route: 048
     Dates: start: 19950204, end: 19950208
  3. ROBITUSSIN-CF SYRUP [Suspect]
     Dosage: QD X 2 WKS ORAL
     Route: 048
     Dates: start: 19950101, end: 19950201
  4. ALKA-SELTZER PLUS COLD MEDICINE EFFERVESCENT TABLETS [Suspect]
     Dosage: ORAL
     Route: 048
  5. NICOTINE [Concomitant]
  6. ALCOHOL [Concomitant]
  7. ASPIRIN [Concomitant]

REACTIONS (7)
  - CEREBELLAR INFARCTION [None]
  - CEREBROVASCULAR ACCIDENT [None]
  - FATIGUE [None]
  - FIBROMYALGIA [None]
  - HEADACHE [None]
  - LOSS OF LIBIDO [None]
  - SLEEP DISORDER [None]
